FAERS Safety Report 6100049-7 (Version None)
Quarter: 2009Q1

REPORT INFORMATION
  Report Type: 
  Country: None (occurrence: None)
  Receive Date: 20090303
  Receipt Date: 20090224
  Transmission Date: 20090719
  Serious: Yes (Hospitalization)
  Sender: FDA-Public Use
  Company Number: B0561388A

PATIENT
  Age: 89 Year
  Sex: Female

DRUGS (10)
  1. AUGMENTIN '125' [Suspect]
     Indication: BRONCHITIS
     Dosage: 1G THREE TIMES PER DAY
     Route: 048
     Dates: start: 20090109, end: 20090123
  2. NULYTELY [Suspect]
     Indication: DRUG USE FOR UNKNOWN INDICATION
     Dosage: 1SAC TWICE PER DAY
     Route: 048
     Dates: start: 20090101, end: 20090123
  3. NICARDIPINE HCL [Concomitant]
     Dosage: 50MG PER DAY
     Route: 048
  4. NOCTRAN [Concomitant]
     Dosage: 10MG PER DAY
     Route: 048
  5. NORSET [Concomitant]
     Dosage: 15MG PER DAY
     Route: 048
  6. DETENSIEL [Concomitant]
     Dosage: 5MG PER DAY
     Route: 048
  7. PREVISCAN [Concomitant]
     Indication: CARDIAC HYPERTROPHY
     Dosage: 5MG PER DAY
     Route: 048
  8. ACETAMINOPHEN AND CODEINE PHOSPHATE [Concomitant]
     Dosage: 2TAB THREE TIMES PER DAY
     Route: 048
     Dates: start: 20090116, end: 20090123
  9. PEVARYL [Concomitant]
     Dosage: 1APP PER DAY
     Route: 061
     Dates: start: 20090116, end: 20090123
  10. RENITEC [Concomitant]
     Dosage: 5MG PER DAY
     Route: 048
     Dates: end: 20090127

REACTIONS (7)
  - CARDIAC FAILURE [None]
  - DIARRHOEA [None]
  - DYSPNOEA [None]
  - HYPOKALAEMIA [None]
  - ORTHOPNOEA [None]
  - TONGUE DRY [None]
  - VOMITING [None]
